FAERS Safety Report 19819261 (Version 1)
Quarter: 2021Q3

REPORT INFORMATION
  Report Type: Spontaneous
  Country: DE (occurrence: DE)
  Receive Date: 20210913
  Receipt Date: 20210913
  Transmission Date: 20211014
  Serious: Yes (Other)
  Sender: FDA-Public Use
  Company Number: DE-AUROBINDO-AUR-APL-2021-038360

PATIENT
  Age: 40 Year
  Sex: Female
  Weight: 61 kg

DRUGS (4)
  1. LAIF 900 [Concomitant]
     Indication: DEPRESSION
     Dosage: 900 MILLIGRAM, ONCE A DAY
     Route: 048
     Dates: start: 20200618, end: 20210329
  2. TRIMIPRAMIN [Concomitant]
     Active Substance: TRIMIPRAMINE
     Indication: SLEEP DISORDER
     Dosage: UNK (10 [MG / D (TO 9)])
     Route: 048
     Dates: start: 20200618, end: 20200807
  3. ARIPIPRAZOLE. [Suspect]
     Active Substance: ARIPIPRAZOLE
     Indication: SCHIZOPHRENIA
     Dosage: 15 MILLIGRAM, ONCE A DAY
     Route: 048
     Dates: start: 20200618
  4. CLOMIFENE [Concomitant]
     Active Substance: CLOMIPHENE
     Indication: INFERTILITY FEMALE
     Dosage: 50 MILLIGRAM, ONCE A DAY
     Route: 048
     Dates: start: 20200619, end: 20200624

REACTIONS (2)
  - Exposure during pregnancy [Unknown]
  - Gestational diabetes [Recovered/Resolved]
